FAERS Safety Report 16442377 (Version 1)
Quarter: 2019Q2

REPORT INFORMATION
  Report Type: Spontaneous
  Country: CZ (occurrence: CZ)
  Receive Date: 20190617
  Receipt Date: 20190617
  Transmission Date: 20190711
  Serious: Yes (Hospitalization, Other)
  Sender: FDA-Public Use
  Company Number: CZ-MYLANLABS-2019M1055578

PATIENT
  Age: 70 Year
  Sex: Male

DRUGS (1)
  1. BICALUTAMIDE. [Suspect]
     Active Substance: BICALUTAMIDE
     Indication: PROSTATE CANCER
     Dosage: UNK
     Route: 065

REACTIONS (13)
  - Pyrexia [Recovered/Resolved]
  - Chills [Recovered/Resolved]
  - Intra-abdominal haematoma [Recovered/Resolved]
  - Back pain [Recovered/Resolved]
  - Asthenia [Recovered/Resolved]
  - Aortic aneurysm [Recovered/Resolved]
  - Malignant neoplasm progression [Unknown]
  - Haemorrhage [Recovered/Resolved]
  - Prostate cancer [Unknown]
  - Lymphadenopathy [Recovered/Resolved]
  - Malaise [Recovered/Resolved]
  - Nausea [Recovered/Resolved]
  - Dehydration [Recovered/Resolved]
